FAERS Safety Report 17010189 (Version 2)
Quarter: 2020Q1

REPORT INFORMATION
  Report Type: Spontaneous
  Country: US (occurrence: US)
  Receive Date: 20191108
  Receipt Date: 20200121
  Transmission Date: 20200409
  Serious: No
  Sender: FDA-Public Use
  Company Number: US-PFIZER INC-2019480476

PATIENT
  Age: 46 Year
  Sex: Female

DRUGS (1)
  1. ADVIL LIQUI-GELS [Suspect]
     Active Substance: IBUPROFEN
     Dosage: UNK

REACTIONS (3)
  - Product physical issue [Unknown]
  - Poor quality product administered [Unknown]
  - Glossitis [Unknown]
